FAERS Safety Report 9313707 (Version 3)
Quarter: 2013Q3

REPORT INFORMATION
  Report Type: Spontaneous
  Country: US (occurrence: US)
  Receive Date: 20130529
  Receipt Date: 20130708
  Transmission Date: 20140515
  Serious: No
  Sender: FDA-Public Use
  Company Number: US-009507513-1305USA014924

PATIENT
  Age: 39 Year
  Sex: Female

DRUGS (1)
  1. NEXPLANON [Suspect]
     Indication: CONTRACEPTION
     Dosage: 1 ROD
     Route: 059
     Dates: start: 20130521

REACTIONS (4)
  - Complication of device insertion [Recovered/Resolved]
  - Device deployment issue [Unknown]
  - Medical device complication [Unknown]
  - No adverse event [Unknown]
